FAERS Safety Report 5826508-X (Version None)
Quarter: 2008Q3

REPORT INFORMATION
  Report Type: 
  Country: None (occurrence: None)
  Receive Date: 20080723
  Receipt Date: 20071119
  Transmission Date: 20090109
  Serious: Yes (Hospitalization, Other)
  Sender: FDA-Public Use
  Company Number: US018071

PATIENT

DRUGS (15)
  1. ENBREL [Suspect]
     Indication: PSORIASIS
     Dosage: 2 IN1 WEEKS; TPL
     Route: 064
     Dates: start: 20050808, end: 20050906
  2. ENBREL [Suspect]
     Indication: RHEUMATOID ARTHRITIS
     Dosage: 2 IN1 WEEKS; TPL
     Route: 064
     Dates: start: 20050808, end: 20050906
  3. METOCLOPRAMIDE [Suspect]
  4. PRENATAL VITAMINS(PRENATAL VITAMINS) [Concomitant]
  5. CAFFEINE CITRATE [Concomitant]
  6. DIPHENHYDRAMINE HYDROCHLORIDE (DIPHENHYDRAMINE) [Concomitant]
  7. ASCORBIC ACID [Concomitant]
  8. POLIC ACID (FOLIC ACID) [Concomitant]
  9. IRON (IRON) [Concomitant]
  10. ANTIBIOTIC NOS (ANTIBIOTIC NOS) [Concomitant]
  11. UNSPECIFIED ANESTHETIC (UNSPECIFIED ANESTHETIC) [Concomitant]
  12. ACETAMINOPHEN [Concomitant]
  13. TUMS (TUMS) [Concomitant]
  14. DIPHENHYDRAMINE HCL [Concomitant]
  15. UNSPECIFIED MEDICATION (UNSPECIFIED MEDICATION) [Concomitant]

REACTIONS (1)
  - DRUG EXPOSURE DURING PREGNANCY [None]
